FAERS Safety Report 7138267-1 (Version None)
Quarter: 2010Q4

REPORT INFORMATION
  Report Type: 
  Country: None (occurrence: None)
  Receive Date: 20101206
  Receipt Date: 20101126
  Transmission Date: 20110411
  Serious: Yes (Other)
  Sender: FDA-Public Use
  Company Number: EE-ROCHE-743211

PATIENT
  Age: 55 Year
  Sex: Female
  Weight: 64 kg

DRUGS (1)
  1. HERCEPTIN [Suspect]
     Indication: BREAST CANCER
     Dosage: FREQUENCY: 3W
     Route: 042
     Dates: start: 20100204, end: 20100916

REACTIONS (3)
  - EJECTION FRACTION DECREASED [None]
  - EXTRASYSTOLES [None]
  - HYDROTHORAX [None]
